FAERS Safety Report 6663455-8 (Version None)
Quarter: 2010Q2

REPORT INFORMATION
  Report Type: 
  Country: None (occurrence: None)
  Receive Date: 20100401
  Receipt Date: 20100323
  Transmission Date: 20101027
  Serious: Yes (Other)
  Sender: FDA-Public Use
  Company Number: US-PFIZER INC-2010037163

PATIENT
  Sex: Female

DRUGS (1)
  1. PROCARDIA [Suspect]

REACTIONS (2)
  - ERYTHEMA [None]
  - SWELLING FACE [None]
